FAERS Safety Report 5188515-2 (Version None)
Quarter: 2006Q4

REPORT INFORMATION
  Report Type: 
  Country: None (occurrence: None)
  Receive Date: 20061221
  Receipt Date: 20061215
  Transmission Date: 20070319
  Serious: Yes (Other)
  Sender: FDA-Public Use
  Company Number: US-JNJFOC-20061003088

PATIENT
  Age: 67 Year
  Sex: Male

DRUGS (3)
  1. KETOCONAZOLE [Suspect]
     Indication: DRUG USE FOR UNKNOWN INDICATION
  2. CASODEX [Suspect]
     Indication: DRUG USE FOR UNKNOWN INDICATION
  3. HORMONE THERAPY [Concomitant]

REACTIONS (2)
  - PAIN IN EXTREMITY [None]
  - PROSTATE CANCER METASTATIC [None]
